FAERS Safety Report 9123308 (Version 2)
Quarter: 2013Q1

REPORT INFORMATION
  Report Type: Spontaneous
  Country: US (occurrence: US)
  Receive Date: 20130227
  Receipt Date: 20130311
  Transmission Date: 20140127
  Serious: No
  Sender: FDA-Public Use
  Company Number: US-ELI_LILLY_AND_COMPANY-US201302006275

PATIENT
  Sex: Male

DRUGS (1)
  1. HUMALOG LISPRO [Suspect]
     Dosage: UNK
     Route: 058

REACTIONS (5)
  - Blood glucose increased [Recovered/Resolved]
  - Presyncope [Recovered/Resolved]
  - Anxiety [Recovered/Resolved]
  - Feeling abnormal [Recovered/Resolved]
  - Blood glucose decreased [Recovered/Resolved]
